FAERS Safety Report 8349434-3 (Version None)
Quarter: 2012Q2

REPORT INFORMATION
  Report Type: 
  Country: None (occurrence: None)
  Receive Date: 20120510
  Receipt Date: 20120507
  Transmission Date: 20120825
  Serious: Yes (Other)
  Sender: FDA-Public Use
  Company Number: BR-PFIZER INC-2012111853

PATIENT
  Age: 72 Year
  Sex: Male

DRUGS (1)
  1. LYRICA [Suspect]
     Indication: PAIN
     Dosage: 75 MG, ONE TABLET ONCE DAILY, CONTINUE TREATMENT
     Route: 048
     Dates: start: 20110707

REACTIONS (3)
  - SPINAL FRACTURE [None]
  - CARDIAC DISORDER [None]
  - CHEST PAIN [None]
